FAERS Safety Report 10364977 (Version 1)
Quarter: 2014Q3

REPORT INFORMATION
  Report Type: Spontaneous
  Country: US (occurrence: None)
  Receive Date: 20140804
  Receipt Date: 20140804
  Transmission Date: 20150326
  Serious: Yes (Hospitalization, Disabling, Other)
  Sender: FDA-Public Use
  Company Number: None

PATIENT
  Age: 32 Year
  Sex: Male
  Weight: 145.15 kg

DRUGS (2)
  1. ANDROGEL [Suspect]
     Active Substance: TESTOSTERONE
     Indication: BLOOD TESTOSTERONE DECREASED
     Dosage: 2 PUMPS PER DAY ONCE DAILY APPLIED TO THE SURGACE, USUALLY THE SKIN
     Dates: start: 19920131, end: 20140802
  2. ANDROGEL [Suspect]
     Active Substance: TESTOSTERONE
     Indication: ERECTILE DYSFUNCTION
     Dosage: 2 PUMPS PER DAY ONCE DAILY APPLIED TO THE SURGACE, USUALLY THE SKIN
     Dates: start: 19920131, end: 20140802

REACTIONS (6)
  - Gynaecomastia [None]
  - Sleep apnoea syndrome [None]
  - Cardiac failure congestive [None]
  - Chronic obstructive pulmonary disease [None]
  - Pulmonary embolism [None]
  - Tachycardia [None]

NARRATIVE: CASE EVENT DATE: 20140802
